FAERS Safety Report 21472446 (Version 1)
Quarter: 2022Q4

REPORT INFORMATION
  Report Type: Report from Study
  Country: US (occurrence: US)
  Receive Date: 20221018
  Receipt Date: 20221018
  Transmission Date: 20230113
  Serious: Yes (Other)
  Sender: FDA-Public Use
  Company Number: US-ABBVIE-4163552

PATIENT
  Sex: Female

DRUGS (1)
  1. HUMIRA [Suspect]
     Active Substance: ADALIMUMAB
     Indication: Product used for unknown indication
     Dosage: CITRATE FREE?STRENGTH:40MG/0.4ML
     Route: 058

REACTIONS (4)
  - Neoplasm malignant [Recovered/Resolved]
  - Diabetes mellitus [Recovered/Resolved]
  - Joint swelling [Not Recovered/Not Resolved]
  - Hypertension [Recovered/Resolved]
